FAERS Safety Report 10237470 (Version 2)
Quarter: 2014Q3

REPORT INFORMATION
  Report Type: Spontaneous
  Country: US (occurrence: US)
  Receive Date: 20140615
  Receipt Date: 20140806
  Transmission Date: 20150326
  Serious: No
  Sender: FDA-Public Use
  Company Number: US-009507513-1406USA004747

PATIENT

DRUGS (2)
  1. NOROXIN [Suspect]
     Active Substance: NORFLOXACIN
     Indication: PROPHYLAXIS
  2. NOROXIN [Suspect]
     Active Substance: NORFLOXACIN
     Indication: INFECTION
     Route: 048

REACTIONS (1)
  - Incorrect drug administration duration [Unknown]
